FAERS Safety Report 14068400 (Version 2)
Quarter: 2017Q4

REPORT INFORMATION
  Report Type: Spontaneous
  Country: US (occurrence: US)
  Receive Date: 20171010
  Receipt Date: 20171018
  Transmission Date: 20180321
  Serious: No
  Sender: FDA-Public Use
  Company Number: US-HORIZON-PEN-0441-2017

PATIENT
  Age: 65 Year
  Sex: Male

DRUGS (1)
  1. PENNSAID [Suspect]
     Active Substance: DICLOFENAC SODIUM
     Indication: TENDON DISCOMFORT
     Dosage: 2 PUMPS FOR 2-3 DAYS A YEAR AGO

REACTIONS (3)
  - Hypersensitivity [Recovering/Resolving]
  - Phlebitis [Recovered/Resolved]
  - Off label use [Unknown]

NARRATIVE: CASE EVENT DATE: 20170929
